FAERS Safety Report 8369170-7 (Version None)
Quarter: 2012Q2

REPORT INFORMATION
  Report Type: 
  Country: None (occurrence: None)
  Receive Date: 20120518
  Receipt Date: 20120511
  Transmission Date: 20120825
  Serious: Yes (Hospitalization)
  Sender: FDA-Public Use
  Company Number: FR-TEVA-338233USA

PATIENT
  Age: 62 Year
  Sex: Female

DRUGS (2)
  1. MABTHERA [Suspect]
     Indication: LYMPHOMA
     Dosage: 375 MG/M2, CYCLIC
     Route: 041
     Dates: start: 20110201
  2. TREANDA [Suspect]
     Indication: LYMPHOMA
     Dosage: 70 MG/M2, CYCLIC
     Route: 041
     Dates: start: 20110201

REACTIONS (2)
  - HYPOGAMMAGLOBULINAEMIA [None]
  - BRONCHITIS [None]
